FAERS Safety Report 8501709 (Version 3)
Quarter: 2012Q4

REPORT INFORMATION
  Report Type: 
  Country: US (occurrence: US)
  Receive Date: 20120410
  Receipt Date: 20120912
  Transmission Date: 20130627
  Serious: Yes (Hospitalization)
  Sender: FDA-Public Use
  Company Number: US-BAYER-2012-032574

PATIENT
  Age: 45 Year
  Sex: Female
  Weight: 53.52 kg

DRUGS (2)
  1. YAZ [Suspect]
     Indication: CONTRACEPTION
     Dosage: UNK
     Dates: start: 20071018, end: 20100317
  2. AZITHROMYCIN [Concomitant]
     Dosage: 250 mg, OM

REACTIONS (7)
  - Pulmonary embolism [None]
  - Injury [None]
  - Anxiety [None]
  - Pain [None]
  - Anhedonia [None]
  - Pleuritic pain [None]
  - Dyspnoea [None]
